FAERS Safety Report 23701673 (Version 1)
Quarter: 2024Q2

REPORT INFORMATION
  Report Type: Spontaneous
  Country: GB (occurrence: GB)
  Receive Date: 20240403
  Receipt Date: 20240403
  Transmission Date: 20240716
  Serious: Yes (Other)
  Sender: FDA-Public Use
  Company Number: None

PATIENT
  Sex: Female

DRUGS (1)
  1. FEXOFENADINE [Suspect]
     Active Substance: FEXOFENADINE HYDROCHLORIDE
     Indication: Rhinitis allergic
     Dosage: 180MG ONCE A DAY
     Dates: start: 20240310, end: 20240318

REACTIONS (1)
  - Rash pruritic [Not Recovered/Not Resolved]
